FAERS Safety Report 8051095-8 (Version None)
Quarter: 2012Q1

REPORT INFORMATION
  Report Type: 
  Country: None (occurrence: None)
  Receive Date: 20120117
  Receipt Date: 20120112
  Transmission Date: 20120608
  Serious: Yes (Death, Hospitalization, Other)
  Sender: FDA-Public Use
  Company Number: PHHY2012MX000876

PATIENT
  Sex: Male

DRUGS (5)
  1. STALEVO 100 [Suspect]
     Dosage: (200/50/37.5 MG) 1 DF, TID (EVERY 8 HOURS)
     Route: 048
     Dates: start: 20111201, end: 20111216
  2. CAPTOPRIL [Concomitant]
     Indication: HYPERTENSION
  3. EXELON [Concomitant]
     Indication: PARKINSON'S DISEASE
     Dosage: 1 PER DAY
     Dates: start: 20111201
  4. BROMOCRIPTINE MESYLATE [Concomitant]
     Dosage: 1 PER DAY
     Dates: start: 20110401, end: 20111201
  5. STALEVO 100 [Suspect]
     Indication: PARKINSON'S DISEASE
     Dosage: (200/50/37.5 MG) 2 TABLETS PER DAY
     Route: 048
     Dates: start: 20110901, end: 20111201

REACTIONS (5)
  - PARKINSON'S DISEASE [None]
  - RESPIRATORY ARREST [None]
  - HYPOVOLAEMIC SHOCK [None]
  - DIARRHOEA [None]
  - RENAL FAILURE ACUTE [None]
